FAERS Safety Report 11039872 (Version 3)
Quarter: 2015Q3

REPORT INFORMATION
  Report Type: Spontaneous
  Country: BR (occurrence: BR)
  Receive Date: 20150416
  Receipt Date: 20150824
  Transmission Date: 20151125
  Serious: Yes (Other)
  Sender: FDA-Public Use
  Company Number: BR-ELI_LILLY_AND_COMPANY-BR201504002133

PATIENT
  Age: 41 Year
  Sex: Female
  Weight: 72 kg

DRUGS (8)
  1. COLLAGEN [Concomitant]
     Active Substance: COLLAGEN
     Indication: TENDONITIS
     Dosage: UNK, UNKNOWN
     Route: 065
  2. HUMALOG [Suspect]
     Active Substance: INSULIN LISPRO
     Indication: DIABETES MELLITUS
     Dosage: UNK, PRN
     Route: 058
     Dates: start: 2007
  3. COLLAGEN [Concomitant]
     Active Substance: COLLAGEN
     Indication: CARPAL TUNNEL SYNDROME
  4. BIOTIN [Concomitant]
     Active Substance: BIOTIN
     Indication: CARPAL TUNNEL SYNDROME
  5. HUMULIN N [Suspect]
     Active Substance: INSULIN HUMAN
     Indication: DIABETES MELLITUS
     Dosage: 32 IU, EACH MORNING
     Route: 058
  6. BIOTIN [Concomitant]
     Active Substance: BIOTIN
     Indication: TENDONITIS
     Dosage: UNK, UNKNOWN
     Route: 065
  7. HUMULIN N [Suspect]
     Active Substance: INSULIN HUMAN
     Dosage: 08 IU, EACH EVENING
     Route: 058
     Dates: start: 2002
  8. PURAN [Concomitant]
     Active Substance: LEVOTHYROXINE SODIUM
     Indication: HYPOTHYROIDISM
     Dosage: UNK, UNKNOWN
     Route: 065
     Dates: start: 1996

REACTIONS (4)
  - Exposure during pregnancy [Recovered/Resolved]
  - Vitamin D deficiency [Unknown]
  - Abortion spontaneous [Unknown]
  - Blighted ovum [Unknown]

NARRATIVE: CASE EVENT DATE: 201406
